FAERS Safety Report 16287687 (Version 4)
Quarter: 2022Q3

REPORT INFORMATION
  Report Type: Spontaneous
  Country: US (occurrence: None)
  Receive Date: 20190508
  Receipt Date: 20220926
  Transmission Date: 20221027
  Serious: Yes (Hospitalization, Disabling, Other)
  Sender: FDA-Public Use
  Company Number: 2019SE62696

PATIENT
  Age: 37 Year
  Sex: Male
  Weight: 86.2 kg

DRUGS (63)
  1. NEXIUM [Suspect]
     Active Substance: ESOMEPRAZOLE MAGNESIUM
     Indication: Gastrooesophageal reflux disease
     Route: 048
     Dates: start: 2001, end: 2017
  2. NEXIUM [Suspect]
     Active Substance: ESOMEPRAZOLE MAGNESIUM
     Indication: Gastrooesophageal reflux disease
     Dosage: GENERIC
     Route: 065
     Dates: start: 2016
  3. PRILOSEC [Suspect]
     Active Substance: OMEPRAZOLE MAGNESIUM
     Indication: Gastrooesophageal reflux disease
     Route: 048
     Dates: start: 1990
  4. PRILOSEC [Suspect]
     Active Substance: OMEPRAZOLE MAGNESIUM
     Indication: Gastrooesophageal reflux disease
     Dosage: GENERIC
     Route: 065
     Dates: end: 2017
  5. PRILOSEC [Suspect]
     Active Substance: OMEPRAZOLE MAGNESIUM
     Indication: Gastrooesophageal reflux disease
     Route: 048
     Dates: start: 2013
  6. PREVACID [Suspect]
     Active Substance: LANSOPRAZOLE
     Route: 065
  7. PROTONIX [Suspect]
     Active Substance: PANTOPRAZOLE SODIUM
     Indication: Gastrooesophageal reflux disease
     Route: 065
     Dates: start: 2000
  8. PROTONIX [Suspect]
     Active Substance: PANTOPRAZOLE SODIUM
     Indication: Gastrooesophageal reflux disease
     Route: 065
     Dates: start: 2000
  9. PROTONIX [Suspect]
     Active Substance: PANTOPRAZOLE SODIUM
     Indication: Gastrooesophageal reflux disease
     Route: 065
     Dates: start: 2013
  10. PROTONIX [Suspect]
     Active Substance: PANTOPRAZOLE SODIUM
     Indication: Gastrooesophageal reflux disease
     Route: 065
     Dates: start: 2013
  11. ISOSORBIDE MONONITRATE [Concomitant]
     Active Substance: ISOSORBIDE MONONITRATE
     Indication: Cardiac failure
     Route: 065
     Dates: start: 20130814, end: 20180602
  12. PREDNISONE [Concomitant]
     Active Substance: PREDNISONE
     Indication: Inflammation
     Route: 065
     Dates: start: 20080121, end: 20151021
  13. ALBUTEROL [Concomitant]
     Active Substance: ALBUTEROL
     Indication: Bronchospasm
     Route: 065
     Dates: start: 20171114, end: 20171204
  14. AMOXICILLIN [Concomitant]
     Active Substance: AMOXICILLIN
     Indication: Infection
     Route: 065
     Dates: start: 20140117, end: 20160822
  15. LISINOPRIL [Concomitant]
     Active Substance: LISINOPRIL
     Indication: Hypertension
     Route: 065
     Dates: start: 20160205
  16. IBUPROFEN [Concomitant]
     Active Substance: IBUPROFEN
     Indication: Headache
     Route: 065
     Dates: start: 199001
  17. TYLENOL [Concomitant]
     Active Substance: ACETAMINOPHEN
     Indication: Pain
     Route: 065
     Dates: start: 199001
  18. BENADRYL [Concomitant]
     Active Substance: DIPHENHYDRAMINE HYDROCHLORIDE
     Indication: Multiple allergies
     Route: 065
     Dates: start: 199001
  19. VITAMIN D [Concomitant]
     Active Substance: VITAMIN D NOS
     Indication: Bone disorder
  20. PEPCID [Concomitant]
     Active Substance: FAMOTIDINE
  21. TUMS [Concomitant]
     Active Substance: CALCIUM CARBONATE
  22. PEPTO-BISMOL [Concomitant]
     Active Substance: BISMUTH SUBSALICYLATE
  23. ROLAIDS [Concomitant]
     Active Substance: CALCIUM CARBONATE\MAGNESIUM HYDROXIDE
  24. MYLANTA [Concomitant]
     Active Substance: ALUMINUM HYDROXIDE\DIMETHICONE\MAGNESIUM HYDROXIDE
  25. CALCITRIOL [Concomitant]
     Active Substance: CALCITRIOL
  26. DOCUSATE SODIUM [Concomitant]
     Active Substance: DOCUSATE SODIUM
  27. DULCOLAX NOS [Concomitant]
     Active Substance: BISACODYL OR DOCUSATE SODIUM
  28. EPOGEN [Concomitant]
     Active Substance: ERYTHROPOIETIN
  29. GENTAMICIN [Concomitant]
     Active Substance: GENTAMICIN
  30. LACTULOSE [Concomitant]
     Active Substance: LACTULOSE
  31. LANTUS [Concomitant]
     Active Substance: INSULIN GLARGINE
  32. NITROGLYCERIN [Concomitant]
     Active Substance: NITROGLYCERIN
  33. POTASSIUM CHLORIDE [Concomitant]
     Active Substance: POTASSIUM CHLORIDE
  34. CIPRODEX [Concomitant]
     Active Substance: CIPROFLOXACIN HYDROCHLORIDE\DEXAMETHASONE
  35. OXYCODONE [Concomitant]
     Active Substance: OXYCODONE
  36. LIDOCAINE [Concomitant]
     Active Substance: LIDOCAINE
  37. TRAMADOL [Concomitant]
     Active Substance: TRAMADOL
  38. CEPHALEXIN [Concomitant]
     Active Substance: CEPHALEXIN
  39. LEVOFLOXACIN [Concomitant]
     Active Substance: LEVOFLOXACIN
  40. CALCIUM ACETATE [Concomitant]
     Active Substance: CALCIUM ACETATE
  41. BENZONATATE [Concomitant]
     Active Substance: BENZONATATE
  42. FLUCONAZOLE [Concomitant]
     Active Substance: FLUCONAZOLE
  43. ESCITALOPRAM [Concomitant]
     Active Substance: ESCITALOPRAM OXALATE
  44. TRAZODONE [Concomitant]
     Active Substance: TRAZODONE HYDROCHLORIDE
  45. BISACODYL [Concomitant]
     Active Substance: BISACODYL
  46. AZITHROMYCIN [Concomitant]
     Active Substance: AZITHROMYCIN
  47. ONDANSETRON [Concomitant]
     Active Substance: ONDANSETRON
  48. NITROSTAT [Concomitant]
     Active Substance: NITROGLYCERIN
  49. DOXYCYCLINE [Concomitant]
     Active Substance: DOXYCYCLINE
  50. LOSARTAN [Concomitant]
     Active Substance: LOSARTAN
  51. SPIRIVA [Concomitant]
     Active Substance: TIOTROPIUM BROMIDE MONOHYDRATE
  52. BETAMETHASONE [Concomitant]
     Active Substance: BETAMETHASONE
  53. CYCLOBENZAPRINE [Concomitant]
     Active Substance: CYCLOBENZAPRINE
  54. SENNA [Concomitant]
     Active Substance: SENNA LEAF\SENNOSIDES\SENNOSIDES A AND B
  55. NYSTATIN [Concomitant]
     Active Substance: NYSTATIN
  56. MOMETASONE [Concomitant]
     Active Substance: MOMETASONE
  57. IPRATROPIUM [Concomitant]
     Active Substance: IPRATROPIUM
  58. CLOPIDOGREL [Concomitant]
     Active Substance: CLOPIDOGREL BISULFATE
  59. CLONIDINE [Concomitant]
     Active Substance: CLONIDINE
  60. ZOLPIDEM [Concomitant]
     Active Substance: ZOLPIDEM TARTRATE
  61. MYCOPHENOLIC ACID [Concomitant]
     Active Substance: MYCOPHENOLIC ACID
  62. SODIUM BICARBONATE [Concomitant]
     Active Substance: SODIUM BICARBONATE
  63. MIRALAX [Concomitant]
     Active Substance: POLYETHYLENE GLYCOL 3350

REACTIONS (6)
  - Acute kidney injury [Not Recovered/Not Resolved]
  - Chronic kidney disease [Not Recovered/Not Resolved]
  - End stage renal disease [Not Recovered/Not Resolved]
  - Renal failure [Not Recovered/Not Resolved]
  - Nephrogenic anaemia [Unknown]
  - Hyperparathyroidism secondary [Unknown]

NARRATIVE: CASE EVENT DATE: 20020101
